FAERS Safety Report 6229934-2 (Version None)
Quarter: 2009Q2

REPORT INFORMATION
  Report Type: 
  Country: None (occurrence: None)
  Receive Date: 20090615
  Receipt Date: 20090605
  Transmission Date: 20091009
  Serious: Yes (Other)
  Sender: FDA-Public Use
  Company Number: US-ELI_LILLY_AND_COMPANY-US200906001642

PATIENT
  Sex: Male

DRUGS (3)
  1. HUMALOG [Suspect]
  2. LANTUS [Concomitant]
  3. AMITRIPTLINE HYDROCHLORIDE TAB [Concomitant]

REACTIONS (17)
  - ANXIETY [None]
  - APHASIA [None]
  - BACK PAIN [None]
  - BLINDNESS TRANSIENT [None]
  - CONFUSIONAL STATE [None]
  - CONVULSION [None]
  - DRUG DOSE OMISSION [None]
  - DYSPNOEA [None]
  - FALL [None]
  - HYPERHIDROSIS [None]
  - HYPERSENSITIVITY [None]
  - ILL-DEFINED DISORDER [None]
  - KIDNEY INFECTION [None]
  - MALAISE [None]
  - PAIN [None]
  - RENAL PAIN [None]
  - VOMITING [None]
